FAERS Safety Report 5648863-6 (Version None)
Quarter: 2008Q1

REPORT INFORMATION
  Report Type: 
  Country: None (occurrence: None)
  Receive Date: 20080229
  Receipt Date: 20080213
  Transmission Date: 20080703
  Serious: Yes (Hospitalization)
  Sender: FDA-Public Use
  Company Number: DSA_31402_2008

PATIENT
  Sex: Male

DRUGS (7)
  1. LORAZEPAM [Suspect]
     Dosage: 15 MG 1X NOT THE PRESCRIBED AMOUNT. ORAL
     Route: 048
     Dates: start: 20080130, end: 20080130
  2. ZOPICLONE (ZOPICLONE) 7.5 MG [Suspect]
     Dosage: 37.5 MG 1X NOT THE PRESCRIBED AMOUNT. ORAL
     Route: 048
     Dates: start: 20080130, end: 20080130
  3. ATENOLOL [Suspect]
     Dosage: 100 DF 1X  NOT THE PRESCRIBED AMOUNT. ORAL
     Route: 048
     Dates: start: 20080130, end: 20080130
  4. METFORMIN HCL [Suspect]
     Dosage: 50DF 1X NOT THE PRESCRIBED AMOUNT. ORAL
     Route: 048
     Dates: start: 20080130, end: 20080130
  5. METOCLOPRAMIDE HYDROCHLORIDE [Suspect]
     Dosage: 400 MG 1X NOT THE PRESCRIBED AMOUNT. ORAL; 100 ML NOT THE PRESCRIBED AMOUNT. ORAL
     Route: 048
     Dates: start: 20080130, end: 20080130
  6. LORMETAZEPAM (LORMETAZEPAM) [Suspect]
     Dosage: 15 DF 1X NOT THE PRESCRIBED AMOUNT. ORAL
     Route: 048
     Dates: start: 20080130, end: 20080130
  7. OPIPRAMOL (OPIPRAMOL) [Suspect]
     Dosage: 4 DF 1X NOT THE PRESCRIBED AMOUNT. ORAL
     Route: 048
     Dates: start: 20080130, end: 20080130

REACTIONS (5)
  - LOSS OF CONSCIOUSNESS [None]
  - MIOSIS [None]
  - MULTIPLE DRUG OVERDOSE INTENTIONAL [None]
  - SOPOR [None]
  - SUICIDE ATTEMPT [None]
